FAERS Safety Report 9806093 (Version 1)
Quarter: 2014Q1

REPORT INFORMATION
  Report Type: Spontaneous
  Country: AT (occurrence: AT)
  Receive Date: 20140109
  Receipt Date: 20140109
  Transmission Date: 20141002
  Serious: Yes (Hospitalization)
  Sender: FDA-Public Use
  Company Number: PHHY2014AT001712

PATIENT
  Age: 51 Year
  Sex: Female

DRUGS (2)
  1. DEXAMETHASONE [Suspect]
     Indication: PROPHYLAXIS OF NAUSEA AND VOMITING
     Dosage: 4 MG, ONCE/SINGLE
     Route: 042
  2. RINGER S LACTATE [Concomitant]
     Dosage: 500 ML
     Route: 042

REACTIONS (2)
  - Somnolence [Recovered/Resolved]
  - Sinus bradycardia [Recovered/Resolved]
